FAERS Safety Report 5689666-6 (Version None)
Quarter: 2008Q1

REPORT INFORMATION
  Report Type: 
  Country: None (occurrence: None)
  Receive Date: 20080328
  Receipt Date: 20080320
  Transmission Date: 20080703
  Serious: Yes (Disabling)
  Sender: FDA-Public Use
  Company Number: TMDP-UK-0803S-0007

PATIENT
  Sex: Male

DRUGS (2)
  1. AMERSCAN MDP KIT [Suspect]
     Indication: PROSTATE CANCER
     Dates: start: 20080305, end: 20080305
  2. TECHNETIUM (TC99M) GENERATOR (DRYTEC) (SODIUM PERTECHNETATE TC99M) [Concomitant]

REACTIONS (3)
  - CEREBROVASCULAR ACCIDENT [None]
  - TRANSIENT ISCHAEMIC ATTACK [None]
  - VISUAL DISTURBANCE [None]
